FAERS Safety Report 22211807 (Version 2)
Quarter: 2023Q2

REPORT INFORMATION
  Report Type: Other
  Country: ES (occurrence: ES)
  Receive Date: 20230414
  Receipt Date: 20230512
  Transmission Date: 20230722
  Serious: Yes (Other)
  Sender: FDA-Public Use
  Company Number: ES-JNJFOC-20230400148

PATIENT
  Age: 77 Year
  Sex: Female

DRUGS (4)
  1. RITUXIMAB [Suspect]
     Active Substance: RITUXIMAB
     Indication: Waldenstrom^s macroglobulinaemia
     Dosage: 4 DOSES
     Route: 065
  2. IMBRUVICA [Suspect]
     Active Substance: IBRUTINIB
     Indication: Waldenstrom^s macroglobulinaemia
     Route: 065
  3. CYCLOPHOSPHAMIDE [Suspect]
     Active Substance: CYCLOPHOSPHAMIDE
     Indication: Waldenstrom^s macroglobulinaemia
     Route: 065
  4. ERYTHROPOIETIN [Concomitant]
     Active Substance: ERYTHROPOIETIN

REACTIONS (5)
  - Fungal myositis [Unknown]
  - Pyoderma gangrenosum [Unknown]
  - Febrile neutropenia [Unknown]
  - Candida infection [Unknown]
  - Off label use [Unknown]
